FAERS Safety Report 13479051 (Version 3)
Quarter: 2018Q1

REPORT INFORMATION
  Report Type: Spontaneous
  Country: US (occurrence: US)
  Receive Date: 20170424
  Receipt Date: 20180123
  Transmission Date: 20180508
  Serious: No
  Sender: FDA-Public Use
  Company Number: US-AMGEN-USASP2017037783

PATIENT
  Age: 41 Year
  Sex: Male
  Weight: 58.5 kg

DRUGS (3)
  1. REPATHA [Suspect]
     Active Substance: EVOLOCUMAB
     Indication: TYPE IIA HYPERLIPIDAEMIA
     Dosage: 420 MG, QMO
     Route: 058
     Dates: start: 20170104
  2. ASA [Concomitant]
     Active Substance: ASPIRIN
     Indication: CHEST DISCOMFORT
     Dosage: 325 MG, QD
     Dates: start: 20170104
  3. NADOLOL. [Concomitant]
     Active Substance: NADOLOL
     Indication: CHEST DISCOMFORT
     Dosage: 20 MG, QD
     Dates: start: 20170104

REACTIONS (1)
  - Anxiety [Not Recovered/Not Resolved]

NARRATIVE: CASE EVENT DATE: 20170127
